FAERS Safety Report 9349901 (Version 1)
Quarter: 2013Q2

REPORT INFORMATION
  Report Type: Spontaneous
  Country: NL (occurrence: NL)
  Receive Date: 20130614
  Receipt Date: 20130614
  Transmission Date: 20140414
  Serious: Yes (Other)
  Sender: FDA-Public Use
  Company Number: PHHY2013NL059734

PATIENT
  Age: 3 Year
  Sex: Male

DRUGS (2)
  1. VORICONAZOLE [Suspect]
     Indication: ANTIFUNGAL PROPHYLAXIS
  2. METHOTREXATE [Interacting]
     Dosage: UNK UKN, UNK
     Route: 037

REACTIONS (3)
  - Photosensitivity reaction [Unknown]
  - Cheilitis [Unknown]
  - Drug interaction [Unknown]
